FAERS Safety Report 4642128-7 (Version None)
Quarter: 2005Q2

REPORT INFORMATION
  Report Type: 
  Country: None (occurrence: None)
  Receive Date: 20050422
  Receipt Date: 20050415
  Transmission Date: 20051028
  Serious: Yes (Death, Other)
  Sender: FDA-Public Use
  Company Number: PHBS2005PL05489

PATIENT
  Age: 6 Year
  Sex: Male

DRUGS (4)
  1. METHOTREXATE [Concomitant]
     Indication: STEM CELL TRANSPLANT
  2. CHEMOTHERAPEUTICS,OTHER [Concomitant]
     Indication: STEM CELL TRANSPLANT
  3. ANTITHYMOCYTE IMMUNOGLOBULIN [Concomitant]
     Indication: STEM CELL TRANSPLANT
  4. CYCLOSPORINE [Suspect]
     Indication: STEM CELL TRANSPLANT
     Route: 065

REACTIONS (18)
  - ABDOMINAL PAIN [None]
  - CACHEXIA [None]
  - CYSTITIS HAEMORRHAGIC [None]
  - DIFFUSE LARGE B-CELL LYMPHOMA [None]
  - EPSTEIN-BARR VIRUS INFECTION [None]
  - GRAFT VERSUS HOST DISEASE [None]
  - HEPATOMEGALY [None]
  - INTESTINAL PERFORATION [None]
  - LEUKODYSTROPHY [None]
  - LYMPHADENOPATHY [None]
  - LYMPHOPROLIFERATIVE DISORDER [None]
  - OEDEMA [None]
  - PANCYTOPENIA [None]
  - PNEUMONIA [None]
  - PYREXIA [None]
  - RENAL FAILURE ACUTE [None]
  - SEPSIS [None]
  - SURGERY [None]
